FAERS Safety Report 7127590-2 (Version None)
Quarter: 2010Q4

REPORT INFORMATION
  Report Type: 
  Country: None (occurrence: None)
  Receive Date: 20101129
  Receipt Date: 20101123
  Transmission Date: 20110411
  Serious: Yes (Other)
  Sender: FDA-Public Use
  Company Number: ES-BRISTOL-MYERS SQUIBB COMPANY-15404114

PATIENT
  Sex: Male

DRUGS (1)
  1. VUMON [Suspect]
     Dates: start: 20101123

REACTIONS (2)
  - DRUG ADMINISTRATION ERROR [None]
  - PYREXIA [None]
